FAERS Safety Report 5852739-9 (Version None)
Quarter: 2008Q3

REPORT INFORMATION
  Report Type: 
  Country: None (occurrence: None)
  Receive Date: 20080821
  Receipt Date: 20080811
  Transmission Date: 20090109
  Serious: Yes (Life-Threatening, Hospitalization)
  Sender: FDA-Public Use
  Company Number: DK-AVENTIS-200817598GDDC

PATIENT
  Age: 52 Year
  Sex: Female

DRUGS (1)
  1. DESMOPRESSIN ACETATE [Suspect]
     Dosage: DOSE: UNK
     Route: 042

REACTIONS (2)
  - ISCHAEMIC STROKE [None]
  - PULMONARY EMBOLISM [None]
